FAERS Safety Report 6535355-5 (Version None)
Quarter: 2009Q4

REPORT INFORMATION
  Report Type: 
  Country: None (occurrence: None)
  Receive Date: 20091228
  Receipt Date: 20090605
  Transmission Date: 20100525
  Serious: Yes (Hospitalization)
  Sender: FDA-Public Use
  Company Number: US-002978

PATIENT
  Age: 76 Year
  Sex: Female

DRUGS (4)
  1. MULTIHANCE [Suspect]
     Indication: BILE DUCT OBSTRUCTION
     Dosage: 20ML QD INTRAVENOUS
     Route: 042
     Dates: start: 20090604, end: 20090604
  2. MULTIHANCE [Suspect]
     Indication: MAGNETIC RESONANCE CHOLANGIOPANCREATOGRAPHY
     Dosage: 20ML QD INTRAVENOUS
     Route: 042
     Dates: start: 20090604, end: 20090604
  3. PROZIDE (GLICLAZIDE) [Concomitant]
  4. ATENOLOL [Concomitant]

REACTIONS (4)
  - CHEST PAIN [None]
  - DIZZINESS [None]
  - HYPOAESTHESIA [None]
  - VISION BLURRED [None]
